FAERS Safety Report 10632666 (Version 1)
Quarter: 2014Q4

REPORT INFORMATION
  Report Type: Spontaneous
  Country: FR (occurrence: None)
  Receive Date: 20141203
  Receipt Date: 20141203
  Transmission Date: 20150529
  Serious: Yes (Other)
  Sender: FDA-Public Use
  Company Number: 2014-FR-015691

PATIENT
  Age: 46 Year
  Sex: Male
  Weight: 74 kg

DRUGS (4)
  1. EUPANTOL [Concomitant]
     Active Substance: PANTOPRAZOLE SODIUM
  2. ERWINASE [Suspect]
     Active Substance: ASPARAGINASE ERWINIA CHRYSANTHEMI
     Indication: ACUTE LYMPHOCYTIC LEUKAEMIA
     Dosage: 3 DOSSES
     Route: 042
     Dates: start: 20140725, end: 20140918
  3. CANCIDAS (CASPOFUNGIN ACETATE) [Concomitant]
  4. TIENAM (CILASTATIN SODIUM, IMIPENEM) [Concomitant]

REACTIONS (1)
  - Diabetes mellitus [None]

NARRATIVE: CASE EVENT DATE: 20141115
